FAERS Safety Report 6881409-3 (Version None)
Quarter: 2010Q3

REPORT INFORMATION
  Report Type: 
  Country: None (occurrence: None)
  Receive Date: 20100728
  Receipt Date: 20100728
  Transmission Date: 20110219
  Serious: Yes (Hospitalization)
  Sender: FDA-Public Use
  Company Number: None

PATIENT
  Age: 29 Year
  Sex: Male

DRUGS (1)
  1. DOBUTAMINE HCL [Suspect]
     Indication: CARDIAC STRESS TEST
     Dosage: 40MCG/KG IV
     Route: 042
     Dates: start: 20100723, end: 20100723

REACTIONS (5)
  - INFLAMMATION [None]
  - INFUSION SITE PHLEBITIS [None]
  - PYREXIA [None]
  - RASH [None]
  - TACHYCARDIA [None]
